FAERS Safety Report 12606527 (Version 1)
Quarter: 2016Q3

REPORT INFORMATION
  Report Type: Spontaneous
  Country: US (occurrence: None)
  Receive Date: 20160728
  Receipt Date: 20160728
  Transmission Date: 20161109
  Serious: Yes (Hospitalization)
  Sender: FDA-Public Use
  Company Number: None

PATIENT
  Age: 79 Year
  Sex: Female
  Weight: 84 kg

DRUGS (9)
  1. FUROSEMIDE. [Concomitant]
     Active Substance: FUROSEMIDE
  2. ONDANSETRON [Concomitant]
     Active Substance: ONDANSETRON
  3. PACERONE [Suspect]
     Active Substance: AMIODARONE HYDROCHLORIDE
     Indication: ATRIAL FIBRILLATION
  4. ATORVASTATIN [Concomitant]
     Active Substance: ATORVASTATIN
  5. XARELTO [Concomitant]
     Active Substance: RIVAROXABAN
  6. BIOTIN [Concomitant]
     Active Substance: BIOTIN
  7. OMEGA-3 FAS [Concomitant]
  8. GLUCOSAMINE [Concomitant]
     Active Substance: GLUCOSAMINE
  9. METOPROLOL. [Concomitant]
     Active Substance: METOPROLOL

REACTIONS (4)
  - Nausea [None]
  - Vomiting [None]
  - Gastroenteritis [None]
  - Diarrhoea [None]

NARRATIVE: CASE EVENT DATE: 20160724
